FAERS Safety Report 16244967 (Version 1)
Quarter: 2019Q2

REPORT INFORMATION
  Report Type: Spontaneous
  Country: US (occurrence: US)
  Receive Date: 20190426
  Receipt Date: 20190426
  Transmission Date: 20190711
  Serious: No
  Sender: FDA-Public Use
  Company Number: US-ASTRAZENECA-2019SE52009

PATIENT
  Age: 55 Year
  Sex: Female

DRUGS (3)
  1. DEXA [Concomitant]
     Indication: STEROID THERAPY
     Route: 048
     Dates: start: 20190304
  2. TAGRISSO [Suspect]
     Active Substance: OSIMERTINIB
     Indication: NON-SMALL CELL LUNG CANCER
     Route: 048
     Dates: start: 201901
  3. TAGRISSO [Suspect]
     Active Substance: OSIMERTINIB
     Indication: STEROID THERAPY
     Route: 048
     Dates: start: 201901

REACTIONS (4)
  - Lacrimation increased [Not Recovered/Not Resolved]
  - Swelling [Not Recovered/Not Resolved]
  - Eye pruritus [Not Recovered/Not Resolved]
  - Haemorrhage [Not Recovered/Not Resolved]

NARRATIVE: CASE EVENT DATE: 201903
